FAERS Safety Report 20619122 (Version 5)
Quarter: 2022Q2

REPORT INFORMATION
  Report Type: Spontaneous
  Country: CA (occurrence: CA)
  Receive Date: 20220322
  Receipt Date: 20220628
  Transmission Date: 20220721
  Serious: Yes (Other)
  Sender: FDA-Public Use
  Company Number: CA-CELLTRION INC.-2022CA003414

PATIENT

DRUGS (9)
  1. INFLECTRA [Suspect]
     Active Substance: INFLIXIMAB-DYYB
     Indication: Crohn^s disease
     Dosage: 10 MG/KG EVERY 4 WEEKS NOT STARTED YET
     Route: 042
  2. INFLECTRA [Suspect]
     Active Substance: INFLIXIMAB-DYYB
     Dosage: 10 MG/KG EVERY 4 WEEKS, 10MG/ML ROUNDED TO NEAREST 100
     Route: 042
     Dates: start: 20220419
  3. INFLECTRA [Suspect]
     Active Substance: INFLIXIMAB-DYYB
     Dosage: 800MG (SUPPOSED TO RECEIVE 10MG/KG AND ROUND UP TO NEAREST 100TH)
     Route: 042
     Dates: start: 20220420
  4. INFLECTRA [Suspect]
     Active Substance: INFLIXIMAB-DYYB
     Dosage: 10 MG/KG EVERY 4 WEEKS, 10MG/ML ROUNDED TO NEAREST 100
     Route: 042
     Dates: start: 20220518
  5. INFLECTRA [Suspect]
     Active Substance: INFLIXIMAB-DYYB
     Dosage: 10 MG/KG EVERY 4 WEEKS, 10MG/ML ROUNDED TO NEAREST 100
     Route: 042
     Dates: start: 20220615
  6. FOLIC ACID [Concomitant]
     Active Substance: FOLIC ACID
     Dosage: UNK
  7. LEUCOVORIN [Concomitant]
     Active Substance: LEUCOVORIN
     Dosage: UNK
  8. METHOTREXATE [Concomitant]
     Active Substance: METHOTREXATE
     Dosage: UNK UNK, WEEKLY
     Route: 065
  9. METHOTREXATE [Concomitant]
     Active Substance: METHOTREXATE
     Dosage: 1 DF, WEEKLY
     Route: 065

REACTIONS (9)
  - Tonsillitis streptococcal [Unknown]
  - Oropharyngeal pain [Not Recovered/Not Resolved]
  - Tonsillar disorder [Unknown]
  - Incontinence [Not Recovered/Not Resolved]
  - Condition aggravated [Not Recovered/Not Resolved]
  - Off label use [Unknown]
  - Off label use [Unknown]
  - Intentional product use issue [Unknown]
  - Incorrect dose administered [Unknown]

NARRATIVE: CASE EVENT DATE: 20220201
